FAERS Safety Report 5699412-8 (Version None)
Quarter: 2008Q2

REPORT INFORMATION
  Report Type: 
  Country: None (occurrence: None)
  Receive Date: 20080404
  Receipt Date: 20080328
  Transmission Date: 20081010
  Serious: Yes (Hospitalization)
  Sender: FDA-Public Use
  Company Number: 163-20785-08032005

PATIENT
  Age: 63 Year
  Sex: Male

DRUGS (7)
  1. THALOMID [Suspect]
     Indication: PROSTATE CANCER
     Dosage: 50 MG, 1 IN 1 D, ORAL, 100-200 MG, ORAL
     Route: 048
     Dates: start: 20051018, end: 20070701
  2. THALOMID [Suspect]
     Indication: PROSTATE CANCER
     Dosage: 50 MG, 1 IN 1 D, ORAL, 100-200 MG, ORAL
     Route: 048
     Dates: start: 20070723, end: 20080225
  3. LOVENOX [Concomitant]
  4. TAXOTERE [Concomitant]
  5. AVASTIN [Concomitant]
  6. LISINOPRIL [Concomitant]
  7. HYDROCHLOROTHIAZIDE [Concomitant]

REACTIONS (4)
  - RENAL FAILURE ACUTE [None]
  - RHABDOMYOLYSIS [None]
  - URINARY TRACT INFECTION [None]
  - UROSEPSIS [None]
